FAERS Safety Report 7269399-5 (Version None)
Quarter: 2011Q1

REPORT INFORMATION
  Report Type: 
  Country: None (occurrence: None)
  Receive Date: 20110202
  Receipt Date: 20110121
  Transmission Date: 20110831
  Serious: Yes (Death)
  Sender: FDA-Public Use
  Company Number: ZA-BRISTOL-MYERS SQUIBB COMPANY-15389778

PATIENT
  Age: 65 Year
  Sex: Male

DRUGS (7)
  1. BLINDED: PLACEBO [Suspect]
     Indication: THROMBOSIS PROPHYLAXIS
     Route: 048
     Dates: start: 20090430, end: 20101112
  2. PREXUM PLUS [Concomitant]
     Dates: start: 20100324
  3. WARFARIN SODIUM [Suspect]
     Indication: THROMBOSIS PROPHYLAXIS
     Route: 048
     Dates: start: 20090430, end: 20101112
  4. METFORMIN [Concomitant]
     Route: 048
     Dates: start: 20091001
  5. BLINDED: APIXABAN [Suspect]
     Indication: THROMBOSIS PROPHYLAXIS
     Route: 048
     Dates: start: 20090430, end: 20101112
  6. CINNARIZINE [Concomitant]
     Dates: start: 20100324
  7. CONCOR [Concomitant]
     Dates: start: 20100324

REACTIONS (1)
  - ORGAN FAILURE [None]
